FAERS Safety Report 10163545 (Version 1)
Quarter: 2014Q2

REPORT INFORMATION
  Report Type: Spontaneous
  Country: US (occurrence: US)
  Receive Date: 20140509
  Receipt Date: 20140509
  Transmission Date: 20141212
  Serious: Yes (Congenital Anomaly, Other)
  Sender: FDA-Public Use
  Company Number: US-PFIZER INC-2014126645

PATIENT
  Sex: Female

DRUGS (8)
  1. ZOLOFT [Suspect]
     Dosage: UNK
     Route: 064
  2. SERTRALINE HCL [Suspect]
     Dosage: UNK
     Route: 064
  3. PHENERGAN [Concomitant]
     Dosage: UNK
     Route: 064
  4. ANCEF [Concomitant]
     Dosage: UNK
     Route: 064
  5. PYRIDIUM [Concomitant]
     Dosage: UNK
     Route: 064
  6. MACRODANTIN [Concomitant]
     Dosage: UNK
     Route: 064
  7. GENTAMYCIN [Concomitant]
     Dosage: UNK
     Route: 064
  8. ALDOMET [Concomitant]
     Dosage: UNK
     Route: 064

REACTIONS (3)
  - Maternal exposure during pregnancy [Unknown]
  - Fallot^s tetralogy [Unknown]
  - Heart disease congenital [Unknown]
